FAERS Safety Report 8796665 (Version 1)
Quarter: 2012Q4

REPORT INFORMATION
  Report Type: 
  Country: US (occurrence: US)
  Receive Date: 20120919
  Receipt Date: 20120919
  Transmission Date: 20130627
  Serious: Yes (Hospitalization)
  Sender: FDA-Public Use
  Company Number: US-009507513-1209USA004635

PATIENT

DRUGS (3)
  1. ISENTRESS [Suspect]
     Dosage: 800 mg, qd
     Route: 048
  2. CELSENTRI [Suspect]
     Dosage: 300 mg, qd
     Route: 048
  3. INTELENCE [Suspect]
     Dosage: 400 mg, qd
     Route: 048

REACTIONS (6)
  - Hepatitis acute [Unknown]
  - Feeling hot [Unknown]
  - Prothrombin level decreased [Unknown]
  - Vomiting [Unknown]
  - Abdominal pain upper [Unknown]
  - Jaundice [Unknown]
